FAERS Safety Report 25946115 (Version 1)
Quarter: 2025Q4

REPORT INFORMATION
  Report Type: Spontaneous
  Country: EU (occurrence: EU)
  Receive Date: 20251022
  Receipt Date: 20251022
  Transmission Date: 20260117
  Serious: Yes (Other)
  Sender: COLLEGIUM PHARMACEUTICAL
  Company Number: None

PATIENT
  Age: 84 Year
  Sex: Male
  Weight: 72 kg

DRUGS (15)
  1. NUCYNTA ER [Suspect]
     Active Substance: TAPENTADOL HYDROCHLORIDE
     Indication: Colon cancer
     Dosage: 50 MILLIGRAM, BID, EVERY 12 HOURS
     Route: 048
     Dates: start: 20250923, end: 20251003
  2. ERYTHROPOIETIN [Concomitant]
     Active Substance: ERYTHROPOIETIN
     Indication: Nephropathy
     Dosage: 5000 INTERNATIONAL UNIT, 1/MONTH
     Route: 058
     Dates: start: 20250324
  3. PANTOPRAZOLE SODIUM [Concomitant]
     Active Substance: PANTOPRAZOLE SODIUM
     Indication: Type 2 diabetes mellitus
     Dosage: 20 MILLIGRAM, 1/DAY
     Route: 048
     Dates: start: 20210508
  4. CALCIFEDIOL [Concomitant]
     Active Substance: CALCIFEDIOL
     Indication: Nephropathy
     Dosage: 0.266 MILLIGRAM, UNKNOWN
     Route: 048
     Dates: start: 20221108
  5. ALOGLIPTIN BENZOATE [Concomitant]
     Active Substance: ALOGLIPTIN BENZOATE
     Indication: Type 2 diabetes mellitus
     Dosage: 6.25 MILLIGRAM, 1/DAY
     Route: 048
     Dates: start: 20221108
  6. ATORVASTATIN CALCIUM\EZETIMIBE [Concomitant]
     Active Substance: ATORVASTATIN CALCIUM\EZETIMIBE
     Indication: Nephropathy
     Dosage: 1 DOSAGE FORM, 1/DAY
     Route: 048
     Dates: start: 20240119
  7. BECLOMETHASONE DIPROPIONATE\FORMOTEROL FUMARATE\GLYCOPYRROLATE [Concomitant]
     Active Substance: BECLOMETHASONE DIPROPIONATE\FORMOTEROL FUMARATE\GLYCOPYRROLATE
     Indication: Bronchitis chronic
     Dosage: 2 DOSAGE FORM, BID, EVERY 12 HOURS
     Dates: start: 20230103
  8. PARACETAMOL PHARMA COMBIX [Concomitant]
     Indication: Colon cancer
     Dosage: 1000 MILLIGRAM BID, EVERY 12 HOURS
     Route: 048
     Dates: start: 20240226
  9. AMLODIPINE BESYLATE [Concomitant]
     Active Substance: AMLODIPINE BESYLATE
     Indication: Nephropathy
     Dosage: 5 MILLIGRAM, 1/DAY
     Route: 048
     Dates: start: 20240119
  10. AMIODARONE HYDROCHLORIDE [Concomitant]
     Active Substance: AMIODARONE HYDROCHLORIDE
     Indication: Atrial fibrillation
     Dosage: 200 MILLIGRAM, QD
     Route: 048
     Dates: start: 20220304
  11. RIVOTRIL [Concomitant]
     Active Substance: CLONAZEPAM
     Indication: Insomnia
     Dosage: 0.5 MILLIGRAM, BID
     Route: 048
     Dates: start: 20250519
  12. LEVETIRACETAM [Concomitant]
     Active Substance: LEVETIRACETAM
     Indication: Nephropathy
     Dosage: 500 MILLIGRAM, 2/DAY
     Route: 048
     Dates: start: 20240212
  13. ELIQUIS [Concomitant]
     Active Substance: APIXABAN
     Indication: Atrial fibrillation
     Dosage: 2.5 MILLIGRAM, BID
     Route: 048
     Dates: start: 20221107
  14. DUPHALAC [Concomitant]
     Active Substance: LACTULOSE
     Indication: Colon cancer
     Dosage: 10 GRAM QD
     Route: 048
     Dates: start: 20250917
  15. METAMIZOLE MAGNESIUM [Concomitant]
     Active Substance: METAMIZOLE MAGNESIUM
     Indication: Colon cancer
     Dosage: 575 MILLIGRAM, TID
     Route: 048
     Dates: start: 20250923

REACTIONS (2)
  - Aggression [Recovering/Resolving]
  - Hallucinations, mixed [Recovering/Resolving]

NARRATIVE: CASE EVENT DATE: 20250927
